FAERS Safety Report 16304719 (Version 2)
Quarter: 2019Q3

REPORT INFORMATION
  Report Type: Spontaneous
  Country: US (occurrence: US)
  Receive Date: 20190513
  Receipt Date: 20190812
  Transmission Date: 20191004
  Serious: Yes (Other)
  Sender: FDA-Public Use
  Company Number: US-PFIZER INC-2019196357

PATIENT
  Age: 88 Year
  Sex: Male
  Weight: 61 kg

DRUGS (10)
  1. MYRBETRIQ [Concomitant]
     Active Substance: MIRABEGRON
     Dosage: 50 MG, ONCE DAILY (IN THE EVENING)
     Dates: start: 2019
  2. WARFARIN [Concomitant]
     Active Substance: WARFARIN
     Dosage: 1 MG, ALTERNATE DAY (1 MG SUN, MON, WED, FRI)
     Dates: start: 2015
  3. WARFARIN [Concomitant]
     Active Substance: WARFARIN
     Dosage: 0.5 MG, ALTERNATE DAY (0.5 MG TUES, THURS, SAT)
     Dates: start: 2015
  4. PLAVIX [Concomitant]
     Active Substance: CLOPIDOGREL BISULFATE
     Dosage: 75 MG, ONCE A DAY
     Dates: start: 2006
  5. ATORVASTATIN [Concomitant]
     Active Substance: ATORVASTATIN
     Dosage: 80 MG, ONCE A DAY
     Dates: start: 2004
  6. METOPROLOL TARTRATE. [Concomitant]
     Active Substance: METOPROLOL TARTRATE
     Dosage: 25 MG, ONCE A DAY
     Dates: start: 2004
  7. VITAMIN D3 [Concomitant]
     Active Substance: CHOLECALCIFEROL
     Dosage: 1 DOSE FORM (DF), DAILY
     Dates: start: 2019
  8. TYLENOL [Concomitant]
     Active Substance: ACETAMINOPHEN
     Dosage: 1-2 CAPS PRN (AS NEEDED)
  9. TOVIAZ [Suspect]
     Active Substance: FESOTERODINE FUMARATE
     Indication: HYPERTONIC BLADDER
     Dosage: 4 MG, ONCE DAILY
     Dates: start: 2019
  10. CARBIDOPA/LEVODOPA [Concomitant]
     Dosage: 0.5 DOSE FORM (DF), TWICE DAILY (25/100)
     Dates: start: 2015

REACTIONS (4)
  - Fatigue [Not Recovered/Not Resolved]
  - Therapeutic product effect incomplete [Unknown]
  - Gait disturbance [Not Recovered/Not Resolved]
  - Asthenia [Not Recovered/Not Resolved]
